FAERS Safety Report 8048178-5 (Version None)
Quarter: 2012Q1

REPORT INFORMATION
  Report Type: 
  Country: None (occurrence: None)
  Receive Date: 20120113
  Receipt Date: 20120113
  Transmission Date: 20120608
  Serious: Yes (Other)
  Sender: FDA-Public Use
  Company Number: None

PATIENT

DRUGS (1)
  1. HEPARIN SODIUM [Suspect]
     Indication: ANGIOPLASTY
     Dosage: 9,000 UNITS INTRAVENOUS 8,000 UNITS INTRAVENOUS
     Route: 042
     Dates: start: 20111222

REACTIONS (1)
  - THROMBOSIS [None]
